FAERS Safety Report 7681582-3 (Version None)
Quarter: 2011Q3

REPORT INFORMATION
  Report Type: 
  Country: None (occurrence: None)
  Receive Date: 20110812
  Receipt Date: 20110803
  Transmission Date: 20111222
  Serious: Yes (Hospitalization, Other)
  Sender: FDA-Public Use
  Company Number: PHHY2011FR56551

PATIENT
  Sex: Female
  Weight: 78 kg

DRUGS (3)
  1. EPOETIN BETA [Concomitant]
     Indication: CHRONIC MYELOID LEUKAEMIA
     Dosage: 10000 IU, QW
     Dates: start: 20060501
  2. ALLOPURINOL [Concomitant]
     Indication: HYPERURICAEMIA
     Dosage: 600 MG, QD
     Route: 048
     Dates: start: 20040801
  3. IMATINIB MESYLATE [Suspect]
     Indication: CHRONIC MYELOID LEUKAEMIA
     Dosage: 400 MG, UNK
     Route: 048
     Dates: start: 20041009

REACTIONS (5)
  - VASCULAR OCCLUSION [None]
  - COLONIC STENOSIS [None]
  - ABSCESS [None]
  - DIVERTICULUM [None]
  - DIVERTICULITIS [None]
